FAERS Safety Report 18556617 (Version 1)
Quarter: 2020Q4

REPORT INFORMATION
  Report Type: Report from Study
  Country: DE (occurrence: DE)
  Receive Date: 20201128
  Receipt Date: 20201128
  Transmission Date: 20210114
  Serious: Yes (Death)
  Sender: FDA-Public Use
  Company Number: DE-TAKEDA-2020TUS053676

PATIENT
  Age: 49 Year
  Sex: Male

DRUGS (1)
  1. HUMAN IMMUNOGLOBULIN; HYALURONIDASE [Suspect]
     Active Substance: HUMAN IMMUNOGLOBULIN G\HYALURONIDASE RECOMBINANT HUMAN
     Indication: LEUKAEMIA
     Dosage: 20 GRAM, 4/WEEK
     Route: 058
     Dates: start: 20200820

REACTIONS (1)
  - Illness [Fatal]

NARRATIVE: CASE EVENT DATE: 20201121
